FAERS Safety Report 5222653-0 (Version None)
Quarter: 2007Q1

REPORT INFORMATION
  Report Type: 
  Country: None (occurrence: None)
  Receive Date: 20061205
  Receipt Date: 20041217
  Transmission Date: 20070707
  Serious: Yes (Hospitalization)
  Sender: FDA-Public Use
  Company Number: 2004UW23653

PATIENT
  Age: 73 Year
  Sex: Female
  Weight: 52.6173 kg

DRUGS (6)
  1. PRILOSEC OTC [Suspect]
     Indication: CHEST DISCOMFORT
     Dosage: 120 MG QD PO
     Route: 048
     Dates: start: 20041109, end: 20041111
  2. PRILOSEC OTC [Suspect]
     Indication: CHEST DISCOMFORT
     Dosage: 120 MG QD PO
     Route: 048
     Dates: start: 20041113, end: 20041113
  3. . [Concomitant]
  4. PLAVIX [Concomitant]
  5. ASPIRIN [Concomitant]
  6. ATENOLOL [Concomitant]

REACTIONS (3)
  - ABDOMINAL PAIN UPPER [None]
  - ASTHENIA [None]
  - CHEST PAIN [None]
